FAERS Safety Report 10226649 (Version 1)
Quarter: 2014Q2

REPORT INFORMATION
  Report Type: Spontaneous
  Country: US (occurrence: US)
  Receive Date: 20140609
  Receipt Date: 20140609
  Transmission Date: 20141212
  Serious: Yes (Death, Other)
  Sender: FDA-Public Use
  Company Number: PHHY2014US069336

PATIENT
  Age: 57 Year
  Sex: Male

DRUGS (10)
  1. MYCOPHENOLATE [Suspect]
  2. METHYLPREDNISOLONE [Suspect]
     Indication: GRAFT VERSUS HOST DISEASE
  3. RAPAMYCIN [Suspect]
     Indication: GRAFT VERSUS HOST DISEASE
  4. ETANERCEPT [Suspect]
     Indication: GRAFT VERSUS HOST DISEASE
  5. BUSULFAN [Concomitant]
  6. FLUDARABINE [Concomitant]
  7. ANTITHYMOCYTE IMMUNOGLOBULIN [Concomitant]
  8. BORTEZOMIB [Concomitant]
     Indication: CHEMOTHERAPY
  9. BENDAMUSTINE [Concomitant]
     Indication: CHEMOTHERAPY
  10. RITUXIMAB [Concomitant]
     Indication: CHEMOTHERAPY

REACTIONS (7)
  - Death [Fatal]
  - Rectal haemorrhage [Unknown]
  - Fungaemia [Unknown]
  - Pyrexia [Unknown]
  - Abdominal symptom [Unknown]
  - Neutropenia [Unknown]
  - Therapeutic response decreased [Unknown]
